FAERS Safety Report 12771152 (Version 1)
Quarter: 2016Q3

REPORT INFORMATION
  Report Type: Spontaneous
  Country: US (occurrence: US)
  Receive Date: 20160919
  Receipt Date: 20160919
  Transmission Date: 20161109
  Serious: No
  Sender: FDA-Public Use
  Company Number: None

PATIENT
  Age: 53 Year
  Sex: Male

DRUGS (1)
  1. RIBAVIRIN TAB 200MG [Suspect]
     Active Substance: RIBAVIRIN
     Indication: CHRONIC HEPATITIS C
     Dosage: 200MG 3 TABS EVERY NIGHT PO
     Route: 048
     Dates: start: 20160916, end: 20160919

REACTIONS (1)
  - Tongue ulceration [None]

NARRATIVE: CASE EVENT DATE: 20160919
